FAERS Safety Report 16149570 (Version 1)
Quarter: 2019Q2

REPORT INFORMATION
  Report Type: Spontaneous
  Country: GB (occurrence: GB)
  Receive Date: 20190402
  Receipt Date: 20190402
  Transmission Date: 20190711
  Serious: Yes (Other)
  Sender: FDA-Public Use
  Company Number: GB-TEVA-2019-GB-1031369

PATIENT
  Age: 61 Year
  Sex: Female
  Weight: 45.36 kg

DRUGS (1)
  1. TEVA UK TOPIRAMATE [Suspect]
     Active Substance: TOPIRAMATE
     Indication: EPILEPSY
     Dosage: 400 MILLIGRAM DAILY;
     Route: 048
     Dates: start: 20190222, end: 20190304

REACTIONS (4)
  - Antisocial personality disorder [Not Recovered/Not Resolved]
  - Boredom [Not Recovered/Not Resolved]
  - Product substitution issue [Unknown]
  - Tearfulness [Not Recovered/Not Resolved]
